FAERS Safety Report 17327096 (Version 2)
Quarter: 2020Q1

REPORT INFORMATION
  Report Type: Spontaneous
  Country: PT (occurrence: PT)
  Receive Date: 20200127
  Receipt Date: 20200310
  Transmission Date: 20200409
  Serious: Yes (Disabling)
  Sender: FDA-Public Use
  Company Number: PT-MYLANLABS-2020M1008172

PATIENT
  Sex: Male

DRUGS (5)
  1. PARACETAMOL [Concomitant]
     Active Substance: ACETAMINOPHEN
     Indication: TENSION HEADACHE
     Dosage: 3000 MILLIGRAM, QD
     Route: 048
     Dates: end: 20191105
  2. VALACICLOVIR [Concomitant]
     Active Substance: VALACYCLOVIR HYDROCHLORIDE
     Indication: HERPES ZOSTER
     Dosage: UNK
     Route: 048
     Dates: start: 20191103, end: 20191105
  3. BRUFEN                             /00109201/ [Concomitant]
     Active Substance: IBUPROFEN
     Indication: TENSION HEADACHE
     Dosage: 600 MILLIGRAM, PRN
     Route: 048
     Dates: start: 20191106, end: 20191106
  4. ESOMEPRAZOLE. [Concomitant]
     Active Substance: ESOMEPRAZOLE MAGNESIUM
     Dosage: UNK
     Route: 048
  5. FLEXIBAN [Suspect]
     Active Substance: CYCLOBENZAPRINE
     Indication: TENSION HEADACHE
     Dosage: 10 MILLIGRAM, QD
     Route: 048
     Dates: start: 20191107

REACTIONS (2)
  - Somnolence [Recovered/Resolved]
  - Paraesthesia [Recovered/Resolved]

NARRATIVE: CASE EVENT DATE: 20191107
